FAERS Safety Report 13062005 (Version 1)
Quarter: 2016Q4

REPORT INFORMATION
  Report Type: Spontaneous
  Country: FR (occurrence: FR)
  Receive Date: 20161226
  Receipt Date: 20161226
  Transmission Date: 20170207
  Serious: Yes (Death)
  Sender: FDA-Public Use
  Company Number: FR-ROCHE-1871512

PATIENT
  Age: 50 Year
  Sex: Female

DRUGS (8)
  1. CEFOTAXIME [Concomitant]
     Active Substance: CEFOTAXIME SODIUM
  2. SERESTA [Concomitant]
     Active Substance: OXAZEPAM
     Route: 065
     Dates: start: 20161028
  3. ALPRAZOLAM. [Concomitant]
     Active Substance: ALPRAZOLAM
     Dosage: 1 TABLET IN THE MORNING AND IN THE EVENING
     Route: 065
  4. SERESTA [Concomitant]
     Active Substance: OXAZEPAM
     Route: 065
     Dates: start: 20161031
  5. SERESTA [Concomitant]
     Active Substance: OXAZEPAM
     Route: 065
     Dates: start: 20161029
  6. VALIUM [Suspect]
     Active Substance: DIAZEPAM
     Indication: AGITATION
     Dosage: FORM STRENGTH 10 MG/ 2 ML
     Route: 042
     Dates: start: 20161101, end: 20161101
  7. BISOPROLOL [Concomitant]
     Active Substance: BISOPROLOL
     Dosage: IN THE MORNING
     Route: 065
  8. LACTULOSE. [Concomitant]
     Active Substance: LACTULOSE
     Route: 065

REACTIONS (2)
  - Cardio-respiratory arrest [Fatal]
  - Aspiration [Fatal]

NARRATIVE: CASE EVENT DATE: 20161102
